FAERS Safety Report 9731409 (Version 1)
Quarter: 2013Q4

REPORT INFORMATION
  Report Type: Spontaneous
  Country: GB (occurrence: None)
  Receive Date: 20131203
  Receipt Date: 20131203
  Transmission Date: 20140711
  Serious: Yes (Other)
  Sender: FDA-Public Use
  Company Number: 7252140

PATIENT
  Age: 26 Year
  Sex: Female

DRUGS (4)
  1. LEVOTHYROXINE [Suspect]
     Indication: HYPOTHYROIDISM
  2. ENOXAPARIN (ENOXAPARIN) (ENOXAPARIN) [Concomitant]
  3. ASPRIN ACID (ACETYLSALICYLIC ACID) [Concomitant]
  4. BETAMETHASONE (BETHASONE) (BETHASONE) [Concomitant]

REACTIONS (13)
  - Caesarean section [None]
  - Labour complication [None]
  - Treatment noncompliance [None]
  - Maternal exposure during pregnancy [None]
  - Stillbirth [None]
  - Pregnancy [None]
  - Blood thyroid stimulating hormone increased [None]
  - Abortion spontaneous [None]
  - Foetal hypokinesia [None]
  - Foetal heart rate increased [None]
  - Premature separation of placenta [None]
  - Placental infarction [None]
  - Haemorrhage in pregnancy [None]
